FAERS Safety Report 6085494-0 (Version None)
Quarter: 2009Q1

REPORT INFORMATION
  Report Type: 
  Country: None (occurrence: None)
  Receive Date: 20090220
  Receipt Date: 20090213
  Transmission Date: 20090719
  Serious: Yes (Life-Threatening)
  Sender: FDA-Public Use
  Company Number: UA-AVENTIS-200911380GDDC

PATIENT
  Age: 59 Year
  Sex: Male
  Weight: 82 kg

DRUGS (4)
  1. LANTUS [Suspect]
     Route: 058
     Dates: start: 20070417, end: 20080827
  2. LANTUS [Suspect]
     Route: 058
     Dates: start: 20080827
  3. APIDRA [Suspect]
     Route: 058
     Dates: start: 20070417, end: 20070827
  4. APIDRA [Suspect]
     Route: 058
     Dates: start: 20070827

REACTIONS (1)
  - ANGINA UNSTABLE [None]
